FAERS Safety Report 24747198 (Version 1)
Quarter: 2024Q4

REPORT INFORMATION
  Report Type: Report from Study
  Country: PK (occurrence: PK)
  Receive Date: 20241218
  Receipt Date: 20241218
  Transmission Date: 20250114
  Serious: Yes (Death)
  Sender: ROCHE
  Company Number: PK-ROCHE-10000156351

PATIENT
  Age: 67 Year
  Sex: Male

DRUGS (1)
  1. RITUXIMAB [Suspect]
     Active Substance: RITUXIMAB
     Indication: Chronic lymphocytic leukaemia
     Route: 042
     Dates: start: 20240318

REACTIONS (1)
  - Brain neoplasm [Fatal]

NARRATIVE: CASE EVENT DATE: 20241119
